FAERS Safety Report 7282413-6 (Version None)
Quarter: 2011Q1

REPORT INFORMATION
  Report Type: 
  Country: None (occurrence: None)
  Receive Date: 20110209
  Receipt Date: 20110131
  Transmission Date: 20110831
  Serious: Yes (Hospitalization)
  Sender: FDA-Public Use
  Company Number: FR-ASTELLAS-2011EU000077

PATIENT
  Sex: Male

DRUGS (5)
  1. AMLOR [Suspect]
     Indication: HYPERTENSION
     Dosage: 5 MG, UID/QD
     Route: 048
  2. CELLCEPT [Suspect]
     Indication: RENAL TRANSPLANT
     Dosage: 1 G, BID
     Route: 048
     Dates: start: 20080901
  3. PROGRAF [Suspect]
     Indication: RENAL TRANSPLANT
     Dosage: 3 DF, BID
     Route: 048
     Dates: start: 20080901
  4. CORTANCYL [Suspect]
     Indication: RENAL TRANSPLANT
     Dosage: 5 MG, UID/QD
     Route: 048
  5. KENZEN [Suspect]
     Indication: HYPERTENSION
     Dosage: 4 MG, UID/QD
     Route: 048

REACTIONS (1)
  - CEREBROVASCULAR ACCIDENT [None]
